FAERS Safety Report 19778213 (Version 1)
Quarter: 2021Q3

REPORT INFORMATION
  Report Type: Spontaneous
  Country: US (occurrence: US)
  Receive Date: 20210902
  Receipt Date: 20210902
  Transmission Date: 20211014
  Serious: Yes (Hospitalization, Other)
  Sender: FDA-Public Use
  Company Number: US-GLAXOSMITHKLINE-US2021180189

PATIENT
  Age: 66 Year
  Sex: Female

DRUGS (1)
  1. TRELEGY ELLIPTA [Suspect]
     Active Substance: FLUTICASONE FUROATE\UMECLIDINIUM BROMIDE\VILANTEROL TRIFENATATE
     Indication: CHRONIC OBSTRUCTIVE PULMONARY DISEASE
     Dosage: UNK, QD, 100/62.5/25, INHALATION
     Route: 055
     Dates: start: 20170101

REACTIONS (3)
  - Pneumonia [Recovering/Resolving]
  - Pneumonectomy [Recovering/Resolving]
  - Lung carcinoma cell type unspecified recurrent [Recovering/Resolving]

NARRATIVE: CASE EVENT DATE: 202102
